FAERS Safety Report 10264761 (Version 1)
Quarter: 2014Q2

REPORT INFORMATION
  Report Type: Spontaneous
  Country: US (occurrence: None)
  Receive Date: 20140625
  Receipt Date: 20140625
  Transmission Date: 20141212
  Serious: Yes (Other)
  Sender: FDA-Public Use
  Company Number: None

PATIENT
  Age: 34 Year
  Sex: Female

DRUGS (1)
  1. DILANTIN [Suspect]
     Dosage: 5 CAPSULES A DAY?
     Dates: start: 20070129, end: 20070309

REACTIONS (2)
  - Convulsion [None]
  - Product substitution issue [None]
